FAERS Safety Report 4932090-1 (Version None)
Quarter: 2006Q1

REPORT INFORMATION
  Report Type: 
  Country: None (occurrence: None)
  Receive Date: 20060303
  Receipt Date: 20051221
  Transmission Date: 20060701
  Serious: Yes (Hospitalization)
  Sender: FDA-Public Use
  Company Number: CN-ROCHE-429573

PATIENT
  Age: 58 Year
  Sex: Female
  Weight: 62.5 kg

DRUGS (3)
  1. TOCILIZUMAB [Suspect]
     Indication: RHEUMATOID ARTHRITIS
     Route: 042
     Dates: start: 20051212, end: 20051212
  2. PLACEBO [Suspect]
     Indication: RHEUMATOID ARTHRITIS
     Route: 042
     Dates: start: 20050825
  3. METHOTREXATE [Suspect]
     Indication: RHEUMATOID ARTHRITIS
     Dosage: ADMINISTERED WEEKLY.
     Route: 065

REACTIONS (6)
  - ARTHRITIS BACTERIAL [None]
  - DEEP VEIN THROMBOSIS [None]
  - EMPYEMA [None]
  - PNEUMOCOCCAL INFECTION [None]
  - PNEUMONIA [None]
  - PULMONARY EMBOLISM [None]
